FAERS Safety Report 7685722-1 (Version None)
Quarter: 2011Q3

REPORT INFORMATION
  Report Type: 
  Country: None (occurrence: None)
  Receive Date: 20110816
  Receipt Date: 20110804
  Transmission Date: 20111222
  Serious: Yes (Other)
  Sender: FDA-Public Use
  Company Number: US-MYLANLABS-2011S1016429

PATIENT
  Age: 61 Year
  Sex: Male

DRUGS (5)
  1. DIPHENHYDRAMINE HYDROCHLORIDE [Concomitant]
  2. SPIRONOLACTONE [Suspect]
     Dates: start: 20110101
  3. ALLEGRA [Suspect]
     Indication: MULTIPLE ALLERGIES
     Route: 048
     Dates: start: 20110101
  4. ALLEGRA [Suspect]
     Indication: HYPERSENSITIVITY
     Route: 048
     Dates: start: 20110101
  5. ZYRTEC [Concomitant]

REACTIONS (1)
  - BLOOD GLUCOSE INCREASED [None]
